FAERS Safety Report 6663542-4 (Version None)
Quarter: 2010Q2

REPORT INFORMATION
  Report Type: 
  Country: None (occurrence: None)
  Receive Date: 20100401
  Receipt Date: 20100324
  Transmission Date: 20101027
  Serious: Yes (Hospitalization)
  Sender: FDA-Public Use
  Company Number: BR-PFIZER INC-2008157793

PATIENT
  Age: 66 Year
  Sex: Male
  Weight: 62 kg

DRUGS (13)
  1. FLUOROURACIL [Suspect]
     Indication: COLORECTAL CANCER
     Dosage: 37.5 MG, 1X/DAY
     Route: 048
     Dates: start: 20080711
  2. BLINDED *NO SUBJECT DRUG [Suspect]
     Indication: COLORECTAL CANCER
     Dosage: 37.5 MG, 1X/DAY
     Route: 048
     Dates: start: 20080711
  3. BLINDED *PLACEBO [Suspect]
     Indication: COLORECTAL CANCER
     Dosage: 37.5 MG, 1X/DAY
     Route: 048
     Dates: start: 20080711
  4. FLUOROURACIL [Suspect]
     Dosage: 37.5 MG, 1X/DAY
     Route: 048
     Dates: start: 20080711
  5. BLINDED SUNITINIB MALATE [Suspect]
     Indication: COLORECTAL CANCER
     Dosage: 37.5 MG, 1X/DAY
     Route: 048
     Dates: start: 20080711
  6. IRINOTECAN HYDROCHLORIDE [Suspect]
     Indication: COLORECTAL CANCER
     Dosage: 242 MG, EVERY 2 WEEKS
     Route: 042
     Dates: start: 20080711
  7. FLUOROURACIL [Suspect]
     Indication: COLORECTAL CANCER
     Dosage: 538 MG, BOLUS, DAY 1 EVERY 2 WEEKS
     Route: 042
     Dates: start: 20080711
  8. FLUOROURACIL [Suspect]
     Dosage: 3226 MG, 46HR CONTINUOUS INFUSION, EVERY 2 WEEKS
     Route: 042
     Dates: start: 20080711
  9. CALCIUM FOLINATE [Suspect]
     Indication: COLORECTAL CANCER
     Dosage: 269 MG, EVERY 2 WEEKS
     Route: 042
     Dates: start: 20080711
  10. CAPTOPRIL [Concomitant]
     Dosage: UNK
     Route: 048
     Dates: start: 20030101
  11. GLIBENCLAMIDE [Concomitant]
     Dosage: UNK
     Route: 048
     Dates: start: 20030101
  12. OMEPRAZOLE [Concomitant]
     Dosage: UNK
     Route: 048
     Dates: start: 20080708
  13. LOPERAMIDE [Concomitant]
     Dosage: UNK
     Route: 048
     Dates: start: 20080811

REACTIONS (1)
  - JUGULAR VEIN THROMBOSIS [None]
